FAERS Safety Report 10914823 (Version 1)
Quarter: 2015Q1

REPORT INFORMATION
  Report Type: Spontaneous
  Country: CA (occurrence: CA)
  Receive Date: 20150313
  Receipt Date: 20150313
  Transmission Date: 20150721
  Serious: Yes (Other)
  Sender: FDA-Public Use
  Company Number: CA-ASTRAZENECA-2015SE21669

PATIENT
  Age: 698 Month
  Sex: Male
  Weight: 68 kg

DRUGS (11)
  1. QUETIAPINE FUMARATE. [Suspect]
     Active Substance: QUETIAPINE FUMARATE
     Indication: SLEEP DISORDER
     Route: 048
     Dates: start: 20140331
  2. QUETIAPINE FUMARATE. [Suspect]
     Active Substance: QUETIAPINE FUMARATE
     Indication: WEIGHT DECREASED
     Route: 048
     Dates: start: 20140327
  3. QUETIAPINE FUMARATE. [Suspect]
     Active Substance: QUETIAPINE FUMARATE
     Indication: SLEEP DISORDER
     Route: 048
     Dates: start: 20140328
  4. ZOPICLONE [Concomitant]
     Active Substance: ZOPICLONE
     Indication: SLEEP DISORDER
     Route: 048
     Dates: start: 20140325
  5. QUETIAPINE FUMARATE. [Suspect]
     Active Substance: QUETIAPINE FUMARATE
     Indication: WEIGHT DECREASED
     Route: 048
     Dates: start: 20140331
  6. VENLAFAXINE XR [Concomitant]
     Active Substance: VENLAFAXINE HYDROCHLORIDE
     Indication: DEPRESSION
     Route: 048
     Dates: start: 20140325
  7. QUETIAPINE FUMARATE. [Suspect]
     Active Substance: QUETIAPINE FUMARATE
     Indication: WEIGHT DECREASED
     Route: 048
     Dates: start: 20140328
  8. LORAZEPAM. [Concomitant]
     Active Substance: LORAZEPAM
     Indication: FEELING ABNORMAL
     Route: 048
     Dates: start: 20140325
  9. QUETIAPINE FUMARATE. [Suspect]
     Active Substance: QUETIAPINE FUMARATE
     Indication: SLEEP DISORDER
     Route: 048
     Dates: start: 20140326
  10. QUETIAPINE FUMARATE. [Suspect]
     Active Substance: QUETIAPINE FUMARATE
     Indication: WEIGHT DECREASED
     Route: 048
     Dates: start: 20140326
  11. QUETIAPINE FUMARATE. [Suspect]
     Active Substance: QUETIAPINE FUMARATE
     Indication: SLEEP DISORDER
     Route: 048
     Dates: start: 20140327

REACTIONS (9)
  - Weight decreased [Unknown]
  - Weight increased [Unknown]
  - Blood pressure decreased [Unknown]
  - Haemorrhage [Unknown]
  - Jaw fracture [Unknown]
  - Loss of consciousness [Unknown]
  - Fall [Unknown]
  - Cyst [Unknown]
  - Joint stiffness [Unknown]

NARRATIVE: CASE EVENT DATE: 201403
